FAERS Safety Report 7671741-8 (Version None)
Quarter: 2011Q3

REPORT INFORMATION
  Report Type: 
  Country: None (occurrence: None)
  Receive Date: 20110809
  Receipt Date: 20110727
  Transmission Date: 20111222
  Serious: Yes (Other)
  Sender: FDA-Public Use
  Company Number: ES-RANBAXY-2011RR-46635

PATIENT
  Age: 22 Year
  Sex: Female

DRUGS (1)
  1. CETIRIZINE HCL [Suspect]
     Indication: ALLERGIC SINUSITIS
     Dosage: 10 MG, UNK
     Route: 065

REACTIONS (1)
  - MYASTHENIA GRAVIS [None]
